FAERS Safety Report 9995379 (Version 2)
Quarter: 2014Q2

REPORT INFORMATION
  Report Type: Spontaneous
  Country: IT (occurrence: None)
  Receive Date: 20140307
  Receipt Date: 20140414
  Transmission Date: 20141212
  Serious: Yes (Other)
  Sender: FDA-Public Use
  Company Number: AUR-APL-2014-02238

PATIENT
  Age: 34 Year
  Sex: Male
  Weight: 80 kg

DRUGS (1)
  1. ATENOLOL (ATENOLOL) [Suspect]
     Indication: HYPERTENSION
     Dosage: 1D
     Route: 048
     Dates: start: 20130510, end: 20130715

REACTIONS (2)
  - Aspartate aminotransferase increased [None]
  - Alanine aminotransferase increased [None]
